FAERS Safety Report 6325107-3 (Version None)
Quarter: 2009Q3

REPORT INFORMATION
  Report Type: 
  Country: None (occurrence: None)
  Receive Date: 20090824
  Receipt Date: 20090702
  Transmission Date: 20100115
  Serious: No
  Sender: FDA-Public Use
  Company Number: US-ABBOTT-09P-163-0583706-00

PATIENT
  Sex: Female
  Weight: 104.42 kg

DRUGS (6)
  1. NIASPAN [Suspect]
     Indication: BLOOD TRIGLYCERIDES INCREASED
     Route: 048
     Dates: start: 20010101
  2. LABETALOL HCL [Concomitant]
     Indication: HYPERTENSION
     Route: 048
  3. HYDROCHLOROTHIAZIDE [Concomitant]
     Indication: DIURETIC THERAPY
     Route: 048
  4. KLOR-CON [Concomitant]
     Indication: DRUG USE FOR UNKNOWN INDICATION
     Route: 048
  5. HUMALOG MIX 75/25 [Concomitant]
     Indication: DIABETES MELLITUS
     Dosage: PER BLOOD SUGAR
     Route: 058
  6. HUMALOG [Concomitant]
     Indication: DIABETES MELLITUS
     Dosage: IF BS OVER 200
     Route: 058

REACTIONS (1)
  - FLUSHING [None]
